FAERS Safety Report 9966875 (Version 3)
Quarter: 2014Q2

REPORT INFORMATION
  Report Type: Report from Study
  Country: US (occurrence: US)
  Receive Date: 20140305
  Receipt Date: 20140501
  Transmission Date: 20141212
  Serious: Yes (Other)
  Sender: FDA-Public Use
  Company Number: US-ABBVIE-14P-163-1206198-00

PATIENT
  Age: 61 Year
  Sex: Female

DRUGS (31)
  1. HUMIRA [Suspect]
     Indication: RHEUMATOID ARTHRITIS
  2. HUMIRA [Suspect]
     Dates: start: 201308
  3. HUMIRA [Suspect]
     Dates: start: 20140127, end: 201403
  4. METHOTREXATE [Concomitant]
     Indication: RHEUMATOID ARTHRITIS
     Dosage: SUNDAY AM
  5. GABAPENTIN [Concomitant]
     Indication: FIBROMYALGIA
     Dosage: 3-4 TIMES DAILY
  6. LAMICTAL [Concomitant]
     Indication: PRODUCT USED FOR UNKNOWN INDICATION
  7. IBUPROFEN [Concomitant]
     Indication: ARTHRALGIA
     Dosage: PRN
  8. ROBAXIN [Concomitant]
     Indication: PRODUCT USED FOR UNKNOWN INDICATION
     Dosage: PRN
  9. IMITREX [Concomitant]
     Indication: MIGRAINE
     Dosage: BID UP TO 2 DAYS/WEEK
     Route: 050
  10. MAXALT [Concomitant]
     Indication: MIGRAINE
     Dosage: UP TO BID TWICE A WEEK IF NEEDED
  11. PROMETHAZINE [Concomitant]
     Indication: NAUSEA
  12. PROMETHAZINE [Concomitant]
     Indication: MIGRAINE
  13. PROPANOLOL [Concomitant]
     Indication: HYPERTENSION
  14. SINGULAR [Concomitant]
     Indication: ASTHMA
     Dosage: AT BEDTIME
  15. ALBUTEROL [Concomitant]
     Indication: ASTHMA
  16. ALBUTEROL [Concomitant]
     Indication: ASTHMA
     Route: 055
  17. ADVAIR [Concomitant]
     Indication: ASTHMA
     Dosage: 100/50 ONE PUFF DAILY
  18. ADVAIR [Concomitant]
     Dosage: 200/100 1 PUFF DAILY
  19. AMITIZA [Concomitant]
     Indication: PRODUCT USED FOR UNKNOWN INDICATION
  20. LEVOTHYROXINE [Concomitant]
     Indication: PRODUCT USED FOR UNKNOWN INDICATION
  21. LEVOTHYROXINE [Concomitant]
  22. CALCIUM +D [Concomitant]
     Indication: PRODUCT USED FOR UNKNOWN INDICATION
  23. MULTIVITAMIN [Concomitant]
     Indication: PRODUCT USED FOR UNKNOWN INDICATION
  24. PANTOPRAZOLE [Concomitant]
     Indication: PRODUCT USED FOR UNKNOWN INDICATION
     Dosage: AT BEDTIME
  25. SENNA [Concomitant]
     Indication: IRRITABLE BOWEL SYNDROME
  26. COLACE [Concomitant]
     Indication: IRRITABLE BOWEL SYNDROME
  27. DULCOLAX STOOL SOFTENER [Concomitant]
     Indication: PRODUCT USED FOR UNKNOWN INDICATION
  28. HEPARIN BLADDER WASH WITH NORMAL SALINE [Concomitant]
     Indication: PRODUCT USED FOR UNKNOWN INDICATION
     Dosage: DAILY OR WEEKLY AS NEEDED
  29. LIDOCAINE [Concomitant]
     Indication: PRODUCT USED FOR UNKNOWN INDICATION
     Dosage: DAILY OR WEEKLY AS NEEDED
  30. FOLIC ACID [Concomitant]
     Indication: PRODUCT USED FOR UNKNOWN INDICATION
  31. PRILOSEC [Concomitant]
     Indication: GASTROOESOPHAGEAL REFLUX DISEASE

REACTIONS (27)
  - Rotator cuff syndrome [Unknown]
  - Transplant failure [Unknown]
  - Device breakage [Unknown]
  - Bone graft [Unknown]
  - Blepharoplasty [Unknown]
  - Upper limb fracture [Unknown]
  - Fall [Not Recovered/Not Resolved]
  - Drug ineffective [Unknown]
  - Rash papular [Unknown]
  - Peripheral swelling [Unknown]
  - Laceration [Unknown]
  - Skin haemorrhage [Unknown]
  - Dry skin [Unknown]
  - Localised infection [Unknown]
  - Erythema [Unknown]
  - Pain in extremity [Unknown]
  - Sensory disturbance [Unknown]
  - Cellulitis [Unknown]
  - Thyroid function test abnormal [Unknown]
  - Thyroid mass [Recovered/Resolved]
  - Renal impairment [Unknown]
  - Neuralgia [Unknown]
  - Nephrolithiasis [Unknown]
  - Renal pain [Not Recovered/Not Resolved]
  - Renal failure chronic [Unknown]
  - Poor quality sleep [Not Recovered/Not Resolved]
  - Dyspnoea [Not Recovered/Not Resolved]
